FAERS Safety Report 6274984-3 (Version None)
Quarter: 2009Q3

REPORT INFORMATION
  Report Type: 
  Country: None (occurrence: None)
  Receive Date: 20090721
  Receipt Date: 20090713
  Transmission Date: 20100115
  Serious: Yes (Hospitalization, Other)
  Sender: FDA-Public Use
  Company Number: US-ASTRAZENECA-2009UW13425

PATIENT
  Age: 47 Year
  Sex: Male
  Weight: 110.2 kg

DRUGS (4)
  1. SEROQUEL [Suspect]
     Indication: BIPOLAR DISORDER
     Dosage: 100 MG TO 250 MG
     Route: 048
     Dates: start: 19990101
  2. ZYPREXA [Concomitant]
     Dates: start: 19960101, end: 19960101
  3. HALDOL [Concomitant]
     Dates: start: 19790101, end: 19800101
  4. THORAZINE [Concomitant]
     Dates: start: 19810101, end: 19820101

REACTIONS (5)
  - BLOOD CHOLESTEROL INCREASED [None]
  - CEREBROVASCULAR ACCIDENT [None]
  - NEUROPATHY PERIPHERAL [None]
  - PANCREATITIS [None]
  - TYPE 2 DIABETES MELLITUS [None]
